FAERS Safety Report 9053253 (Version 2)
Quarter: 2013Q3

REPORT INFORMATION
  Report Type: Spontaneous
  Country: FR (occurrence: FR)
  Receive Date: 20130207
  Receipt Date: 20130731
  Transmission Date: 20140515
  Serious: Yes (Other)
  Sender: FDA-Public Use
  Company Number: PHHY2013FR011428

PATIENT
  Age: 53 Year
  Sex: Male

DRUGS (8)
  1. GLIVEC [Suspect]
     Indication: CHRONIC MYELOID LEUKAEMIA
     Dates: end: 2008
  2. TASIGNA [Suspect]
     Indication: CHRONIC MYELOID LEUKAEMIA
     Dosage: 200 MG, BID
     Route: 048
     Dates: start: 2008
  3. PHOSPHONEUROS [Concomitant]
     Dosage: 250 MG, DAILY
  4. PARIET [Concomitant]
     Dosage: 20 MG
  5. PAROXETINE [Concomitant]
     Dosage: 20 MG
  6. ALPRAZOLAM [Concomitant]
  7. ADVEL [Concomitant]
  8. FLECTOR [Concomitant]

REACTIONS (5)
  - General physical health deterioration [Recovered/Resolved]
  - Condition aggravated [Recovered/Resolved]
  - Hyperhidrosis [Recovered/Resolved]
  - Palpitations [Recovered/Resolved]
  - Blood phosphorus decreased [Recovered/Resolved]
